FAERS Safety Report 15184569 (Version 1)
Quarter: 2018Q3

REPORT INFORMATION
  Report Type: Spontaneous
  Country: US (occurrence: US)
  Receive Date: 20180723
  Receipt Date: 20180723
  Transmission Date: 20181010
  Serious: No
  Sender: FDA-Public Use
  Company Number: US-AMGEN-USASP2018085366

PATIENT
  Sex: Male

DRUGS (2)
  1. BD [Concomitant]
     Dosage: UNK
  2. REPATHA [Suspect]
     Active Substance: EVOLOCUMAB
     Indication: HYPERLIPIDAEMIA
     Dosage: 140 MG/ML (ONE PEN), Q2WK
     Route: 058

REACTIONS (1)
  - Respiratory tract congestion [Not Recovered/Not Resolved]
